FAERS Safety Report 6769560-X (Version None)
Quarter: 2010Q2

REPORT INFORMATION
  Report Type: 
  Country: None (occurrence: None)
  Receive Date: 20100615
  Receipt Date: 20100614
  Transmission Date: 20101027
  Serious: Yes (Death, Hospitalization)
  Sender: FDA-Public Use
  Company Number: PHHY2010GB13264

PATIENT
  Sex: Male

DRUGS (5)
  1. CLOZARIL [Suspect]
     Indication: SCHIZOPHRENIA
     Dosage: UNK
     Dates: start: 19901003
  2. CLOZARIL [Suspect]
     Dosage: UNK
     Route: 048
     Dates: start: 20050501
  3. CLOZARIL [Suspect]
     Dosage: 525MG DAILY
  4. HYOSCINE HBR HYT [Concomitant]
     Indication: SALIVARY HYPERSECRETION
     Dosage: 300 UG, BID
     Route: 048
     Dates: start: 20071201
  5. PROCYCLIDINE HYDROCHLORIDE 2MG TAB [Concomitant]
     Indication: EXTRAPYRAMIDAL DISORDER
     Dosage: 5 MG, TID
     Route: 048
     Dates: start: 20080801

REACTIONS (2)
  - HAEMOGLOBIN DECREASED [None]
  - LUNG CANCER METASTATIC [None]
